FAERS Safety Report 25451953 (Version 1)
Quarter: 2025Q2

REPORT INFORMATION
  Report Type: Spontaneous
  Country: US (occurrence: None)
  Receive Date: 20250617
  Receipt Date: 20250617
  Transmission Date: 20250716
  Serious: Yes (Life-Threatening, Hospitalization)
  Sender: FDA-CTU
  Company Number: None

PATIENT
  Age: 58 Year
  Sex: Male
  Weight: 74.5 kg

DRUGS (1)
  1. PACLITAXEL [Suspect]
     Active Substance: PACLITAXEL
     Indication: Squamous cell carcinoma of lung
     Route: 042
     Dates: start: 20241113, end: 20241113

REACTIONS (9)
  - Feeling hot [None]
  - Infusion related reaction [None]
  - Unresponsive to stimuli [None]
  - Breath sounds abnormal [None]
  - Pulse absent [None]
  - Cardio-respiratory arrest [None]
  - Hypersensitivity [None]
  - Sinus tachycardia [None]
  - Musculoskeletal chest pain [None]

NARRATIVE: CASE EVENT DATE: 20241113
